FAERS Safety Report 10016890 (Version 2)
Quarter: 2014Q1

REPORT INFORMATION
  Report Type: Spontaneous
  Country: JP (occurrence: JP)
  Receive Date: 20140318
  Receipt Date: 20140318
  Transmission Date: 20141002
  Serious: Yes (Death, Other)
  Sender: FDA-Public Use
  Company Number: JP-ROCHE-1169132

PATIENT
  Age: 63 Year
  Sex: Male
  Weight: 64 kg

DRUGS (14)
  1. AVASTIN [Suspect]
     Indication: RECTAL CANCER RECURRENT
     Route: 041
     Dates: start: 20120327, end: 20120525
  2. PREDONINE [Concomitant]
     Indication: AUTOIMMUNE HEPATITIS
     Route: 048
  3. LOXONIN [Concomitant]
     Route: 048
     Dates: end: 20111224
  4. BAYASPIRIN [Concomitant]
     Indication: CORONARY ARTERIAL STENT INSERTION
     Route: 048
  5. OXALIPLATIN [Concomitant]
     Indication: RECTAL CANCER RECURRENT
     Dosage: DOSAGE IS UNCERTAIN.
     Route: 041
     Dates: start: 20120214, end: 20120509
  6. LEVOFOLINATE [Concomitant]
     Indication: RECTAL CANCER RECURRENT
     Dosage: DOSAGE IS UNCERTAIN.
     Route: 041
     Dates: start: 20120214, end: 20120509
  7. LEVOFOLINATE [Concomitant]
     Dosage: DOSAGE IS UNCERTAIN.
     Route: 041
     Dates: start: 20120525, end: 20120526
  8. 5-FU [Concomitant]
     Indication: RECTAL CANCER RECURRENT
     Dosage: DOSAGE IS UNCERTAIN.
     Route: 040
     Dates: start: 20120214, end: 20120509
  9. 5-FU [Concomitant]
     Dosage: DOSAGE IS UNCERTAIN.
     Route: 041
     Dates: start: 20120214, end: 20120509
  10. 5-FU [Concomitant]
     Dosage: DOSAGE IS UNCERTAIN.
     Route: 040
     Dates: start: 20120525, end: 20120526
  11. 5-FU [Concomitant]
     Dosage: DOSAGE IS UNCERTAIN.
     Route: 041
     Dates: start: 20120525, end: 20120526
  12. OXYCONTIN [Concomitant]
     Indication: RECTAL CANCER RECURRENT
     Dosage: DOSAGE DURING A DAY: 20MG-
     Route: 048
     Dates: start: 20120221, end: 20120525
  13. CELECOX [Concomitant]
     Indication: RECTAL CANCER RECURRENT
     Route: 048
     Dates: start: 20120518, end: 20120525
  14. IRINOTECAN HYDROCHLORIDE [Concomitant]
     Indication: RECTAL CANCER RECURRENT
     Dosage: DOSAGE IS UNCERTAIN.
     Route: 041
     Dates: start: 20120525, end: 20120526

REACTIONS (6)
  - Rectal cancer [Fatal]
  - Small intestinal perforation [Fatal]
  - Impaired healing [Unknown]
  - Gastrointestinal necrosis [Unknown]
  - Small intestine ulcer [Unknown]
  - Condition aggravated [Recovered/Resolved]
